FAERS Safety Report 5591026-3 (Version None)
Quarter: 2008Q1

REPORT INFORMATION
  Report Type: 
  Country: None (occurrence: None)
  Receive Date: 20080111
  Receipt Date: 20080111
  Transmission Date: 20080703
  Serious: No
  Sender: FDA-Public Use
  Company Number: None

PATIENT
  Sex: Female
  Weight: 63.5036 kg

DRUGS (1)
  1. CHANTIX [Suspect]
     Indication: SMOKING CESSATION THERAPY
     Dosage: 1MG  2X DAILY  PO
     Route: 048
     Dates: start: 20080101

REACTIONS (5)
  - DIZZINESS [None]
  - IMPAIRED WORK ABILITY [None]
  - MIGRAINE [None]
  - NAUSEA [None]
  - TINNITUS [None]
